FAERS Safety Report 9525838 (Version 1)
Quarter: 2013Q1

REPORT INFORMATION
  Report Type: Spontaneous
  Country: US (occurrence: None)
  Receive Date: 20130314
  Receipt Date: 20130314
  Transmission Date: 20140127
  Serious: Yes (Hospitalization)
  Sender: FDA-Public Use
  Company Number: 1206USA04182

PATIENT
  Age: 75 Year
  Sex: Male

DRUGS (11)
  1. IVEMEND [Suspect]
     Indication: PROPHYLAXIS OF NAUSEA AND VOMITING
     Route: 041
     Dates: start: 20120608
  2. AMBIEN (ZOLPIDEM TARTRATE) [Concomitant]
  3. MK-0152 (HYDROCHLOROTHIAZIDE) [Concomitant]
  4. JALYN (DUTASTERIDE (+) TAMSULOSIN HYDROCHLORIDE) [Concomitant]
  5. MK-0805 (FUROSEMIDE) TABLET [Concomitant]
  6. NEXIUM (ESOMEPRAZOLE MAGNESIUM) [Concomitant]
  7. PROAIR HFA (ALBUTEROL SULFATE) INHALATION AEROSOL [Concomitant]
  8. SERTRALINE HYDROCHLORIDE (SERTRALINE HYDROCHLORIDE) [Concomitant]
  9. SPIRIVA (TIOTROPIUM BROMIDE) (TIOTROPIUM BROMIDE) [Concomitant]
  10. SYMBICORT (BUDESONIDE (+) FORMOTEROL FUMARATE) [Concomitant]
  11. ULTRAM (TRAMADOL HYDROCHLORIDE) [Concomitant]

REACTIONS (1)
  - Malaise [None]
